FAERS Safety Report 7694393-X (Version None)
Quarter: 2011Q3

REPORT INFORMATION
  Report Type: 
  Country: None (occurrence: None)
  Receive Date: 20110819
  Receipt Date: 20110808
  Transmission Date: 20111222
  Serious: Yes (Other)
  Sender: FDA-Public Use
  Company Number: IT-BRISTOL-MYERS SQUIBB COMPANY-15952344

PATIENT
  Age: 42 Year
  Sex: Male

DRUGS (4)
  1. ATAZANAVIR [Suspect]
     Indication: HIV INFECTION
  2. EMTRICITABINE [Suspect]
     Indication: HIV INFECTION
     Dosage: TABLETS.
  3. LOPINAVIR/RITONAVIR [Suspect]
     Indication: HIV INFECTION
     Dosage: 1DF= 400/100 MG.
     Dates: start: 20070301
  4. STAVUDINE [Suspect]
     Indication: HIV INFECTION

REACTIONS (3)
  - BLOOD AMYLASE INCREASED [None]
  - LIPASE INCREASED [None]
  - VIRAL LOAD INCREASED [None]
